FAERS Safety Report 13888939 (Version 1)
Quarter: 2017Q3

REPORT INFORMATION
  Report Type: Other
  Country: JP (occurrence: JP)
  Receive Date: 20170822
  Receipt Date: 20170822
  Transmission Date: 20171127
  Serious: Yes (Other)
  Sender: FDA-Public Use
  Company Number: JP-AJANTA PHARMA USA INC.-2024901

PATIENT
  Age: 71 Year
  Sex: Male

DRUGS (9)
  1. TRICHLORTHIAZIDE [Concomitant]
  2. VORICONAZOLE. [Suspect]
     Active Substance: VORICONAZOLE
     Indication: ENDOPHTHALMITIS
     Route: 048
  3. CLARITHROMYCIN. [Suspect]
     Active Substance: CLARITHROMYCIN
     Route: 048
  4. OLMESARTAN MEDOXOMIL. [Concomitant]
     Active Substance: OLMESARTAN MEDOXOMIL
  5. FUROSEMIDE. [Concomitant]
     Active Substance: FUROSEMIDE
  6. NIFEDIPINE. [Suspect]
     Active Substance: NIFEDIPINE
  7. FEBUXOSTAT. [Concomitant]
     Active Substance: FEBUXOSTAT
  8. GLULISINE [Concomitant]
  9. GLARGINE [Concomitant]

REACTIONS (4)
  - Acute kidney injury [Recovered/Resolved]
  - Renal ischaemia [Recovered/Resolved]
  - Hypotension [Recovered/Resolved]
  - Potentiating drug interaction [Recovered/Resolved]

NARRATIVE: CASE EVENT DATE: 20161026
